FAERS Safety Report 9807041 (Version 3)
Quarter: 2014Q1

REPORT INFORMATION
  Report Type: Report from Study
  Country: BR (occurrence: BR)
  Receive Date: 20140110
  Receipt Date: 20140317
  Transmission Date: 20141002
  Serious: Yes (Other)
  Sender: FDA-Public Use
  Company Number: BR-ROCHE-1330903

PATIENT
  Sex: Female
  Weight: 77 kg

DRUGS (3)
  1. MABTHERA [Suspect]
     Indication: RHEUMATOID ARTHRITIS
     Dosage: MOST RECENT INFUSION ON 01/JUN/2013
     Route: 065
     Dates: start: 20120301, end: 20130601
  2. ATENOLOL [Concomitant]
  3. NATRILIX [Concomitant]

REACTIONS (3)
  - Osteoarthritis [Not Recovered/Not Resolved]
  - Erythema [Recovered/Resolved]
  - Erythema [Recovered/Resolved]
